FAERS Safety Report 9070309 (Version 2)
Quarter: 2013Q2

REPORT INFORMATION
  Report Type: Spontaneous
  Country: US (occurrence: US)
  Receive Date: 20130215
  Receipt Date: 20130514
  Transmission Date: 20140414
  Serious: Yes (Other)
  Sender: FDA-Public Use
  Company Number: US-BAYER-2013-018082

PATIENT
  Age: 24 Year
  Sex: Female

DRUGS (5)
  1. YASMIN [Suspect]
     Dosage: UNK
     Dates: start: 2008, end: 2009
  2. OCELLA [Suspect]
     Dosage: UNK
     Dates: start: 2008, end: 2009
  3. YAZ [Suspect]
     Indication: CONTRACEPTION
     Dosage: UNK
     Dates: start: 2008, end: 2009
  4. AMOXICILLIN W/CLAVULANIC ACID [Concomitant]
     Dosage: 875-125 MG
  5. LOESTRIN FE [Concomitant]

REACTIONS (9)
  - Deep vein thrombosis [None]
  - Thrombosis [None]
  - Abdominal pain [None]
  - Injury [None]
  - Anxiety [None]
  - Pain [None]
  - General physical health deterioration [None]
  - Emotional distress [None]
  - Pain [None]
